FAERS Safety Report 5999689-5 (Version None)
Quarter: 2008Q4

REPORT INFORMATION
  Report Type: 
  Country: None (occurrence: None)
  Receive Date: 20081210
  Receipt Date: 20080725
  Transmission Date: 20090506
  Serious: Yes (Hospitalization, Other)
  Sender: FDA-Public Use
  Company Number: 50890

PATIENT
  Age: 64 Year
  Sex: Male

DRUGS (1)
  1. CISPLATIN [Suspect]
     Indication: METASTATIC NEOPLASM
     Dosage: 143 MG/IV
     Route: 042
     Dates: start: 20070417

REACTIONS (3)
  - NEUTROPENIA [None]
  - SHOCK [None]
  - THROMBOCYTOPENIA [None]
